FAERS Safety Report 6497507-2 (Version None)
Quarter: 2009Q4

REPORT INFORMATION
  Report Type: 
  Country: None (occurrence: None)
  Receive Date: 20091211
  Receipt Date: 20091124
  Transmission Date: 20100525
  Serious: Yes (Hospitalization)
  Sender: FDA-Public Use
  Company Number: 230255J09BRA

PATIENT
  Age: 57 Year
  Sex: Female

DRUGS (8)
  1. REBIF [Suspect]
     Indication: RELAPSING-REMITTING MULTIPLE SCLEROSIS
     Dosage: 44 MCG, 3 IN 1 WEEKS
     Dates: start: 20040601
  2. RIVOTRIL (CLONAZEPAM [Concomitant]
  3. TEGRETOL-XR [Concomitant]
  4. PONDERA (PAROXETINE) (PAROXETINE HYDROCHLORIDE) [Concomitant]
  5. ANTIHYPERTENSIVE (MEDICATION NNOT INFORMED) (ANTIHYPERTENSIVES) [Concomitant]
  6. LITHIUM CARBONATE [Concomitant]
  7. ZARGUS (RISPERIDONE) [Concomitant]
  8. CITALOPRAM HYDROBROMIDE [Concomitant]

REACTIONS (2)
  - LOSS OF CONSCIOUSNESS [None]
  - SUICIDE ATTEMPT [None]
